FAERS Safety Report 16371237 (Version 1)
Quarter: 2019Q2

REPORT INFORMATION
  Report Type: Spontaneous
  Country: US (occurrence: US)
  Receive Date: 20190530
  Receipt Date: 20190530
  Transmission Date: 20190711
  Serious: Yes (Death)
  Sender: FDA-Public Use
  Company Number: PHHY2019US123498

PATIENT

DRUGS (5)
  1. DOCETAXEL. [Suspect]
     Active Substance: DOCETAXEL
     Indication: OROPHARYNGEAL SQUAMOUS CELL CARCINOMA
     Dosage: 75 MG/M2, UNK
     Route: 065
  2. 5-FLUOROURACIL [Suspect]
     Active Substance: FLUOROURACIL
     Indication: OROPHARYNGEAL SQUAMOUS CELL CARCINOMA
     Dosage: 750 MG/M2, (ON DAYS 1-3)
     Route: 065
  3. CISPLATIN. [Suspect]
     Active Substance: CISPLATIN
     Indication: OROPHARYNGEAL SQUAMOUS CELL CARCINOMA
     Dosage: 75 MG/M2, ON DAY 1
     Route: 065
  4. CETUXIMAB. [Suspect]
     Active Substance: CETUXIMAB
     Dosage: 250 MG/M2, QW
     Route: 065
  5. CETUXIMAB. [Suspect]
     Active Substance: CETUXIMAB
     Indication: OROPHARYNGEAL SQUAMOUS CELL CARCINOMA
     Dosage: 400 MG/M2, (ON DAY 1)
     Route: 065

REACTIONS (1)
  - Second primary malignancy [Fatal]
